FAERS Safety Report 25610990 (Version 1)
Quarter: 2025Q3

REPORT INFORMATION
  Report Type: Spontaneous
  Country: BR (occurrence: BR)
  Receive Date: 20250728
  Receipt Date: 20250728
  Transmission Date: 20251021
  Serious: Yes (Death, Hospitalization)
  Sender: BAYER HEALTHCARE PHARMACEUTICALS INC.
  Company Number: BR-BAYER-2025A087053

PATIENT
  Age: 40 Year
  Sex: Female

DRUGS (2)
  1. STIVARGA [Suspect]
     Active Substance: REGORAFENIB MONOHYDRATE
     Indication: Colorectal cancer metastatic
     Dosage: 160 MG, QD (4 TABLETS PER DAY FOR 21 DAYS  WITH A 7-DAY BREAK)
     Dates: end: 202507
  2. STIVARGA [Suspect]
     Active Substance: REGORAFENIB MONOHYDRATE
     Indication: Metastases to lung

REACTIONS (2)
  - Pneumonia [Fatal]
  - Metastases to lung [Fatal]

NARRATIVE: CASE EVENT DATE: 20250101
